FAERS Safety Report 4373906-X (Version None)
Quarter: 2004Q1

REPORT INFORMATION
  Report Type: 
  Country: None (occurrence: None)
  Receive Date: 20040305
  Receipt Date: 20040123
  Transmission Date: 20041129
  Serious: Yes (Other)
  Sender: FDA-Public Use
  Company Number: 2004UW01255

PATIENT
  Age: 70 Year
  Sex: Female
  Weight: 55.7924 kg

DRUGS (5)
  1. ROSUVASTATIN [Suspect]
     Indication: BLOOD CHOLESTEROL INCREASED
     Dosage: 10 MG QD PO
     Route: 048
  2. THYROID MEDICATION [Concomitant]
  3. BETA BLOCKER [Concomitant]
  4. MULTIVITAMIN [Concomitant]
  5. CALCIUM [Concomitant]

REACTIONS (1)
  - URINARY INCONTINENCE [None]
